FAERS Safety Report 8312751 (Version 3)
Quarter: 2012Q4

REPORT INFORMATION
  Report Type: 
  Country: IE (occurrence: IE)
  Receive Date: 20111227
  Receipt Date: 20121024
  Transmission Date: 20130627
  Serious: Yes (Death, Hospitalization)
  Sender: FDA-Public Use
  Company Number: IE-AMGEN-IRLSP2011067362

PATIENT
  Age: 79 Year
  Sex: Female

DRUGS (8)
  1. ARANESP [Suspect]
     Indication: RENAL FAILURE CHRONIC
     Dosage: 40 mug, qmo
     Route: 058
     Dates: start: 20100310, end: 20111121
  2. FUROSEMIDE [Concomitant]
  3. CALCICHEW [Concomitant]
  4. LIPITOR [Concomitant]
  5. DETRUSITOL [Concomitant]
  6. WARFARIN [Concomitant]
     Indication: ATRIAL FIBRILLATION
     Dosage: UNK
  7. ASPIRIN [Concomitant]
     Dosage: 75 mg, UNK
  8. AUGMENTIN                          /00756801/ [Concomitant]
     Dosage: UNK

REACTIONS (7)
  - Haemorrhage intracranial [Fatal]
  - Delirium [Fatal]
  - International normalised ratio increased [Fatal]
  - Bronchopneumonia [Unknown]
  - Cardiac failure congestive [Unknown]
  - Confusional state [Unknown]
  - Fall [Unknown]
